FAERS Safety Report 13464135 (Version 1)
Quarter: 2017Q2

REPORT INFORMATION
  Report Type: Spontaneous
  Country: US (occurrence: US)
  Receive Date: 20170420
  Receipt Date: 20170420
  Transmission Date: 20170830
  Serious: Yes (Other)
  Sender: FDA-Public Use
  Company Number: US-ROCHE-592801

PATIENT
  Age: 18 Year
  Sex: Male
  Weight: 65.8 kg

DRUGS (6)
  1. ACCUTANE [Suspect]
     Active Substance: ISOTRETINOIN
     Route: 065
     Dates: start: 20030331, end: 20030409
  2. ACCUTANE [Suspect]
     Active Substance: ISOTRETINOIN
     Route: 065
     Dates: start: 20030409, end: 20030414
  3. ACCUTANE [Suspect]
     Active Substance: ISOTRETINOIN
     Indication: ACNE
     Dosage: DISPENSED ON 18 DEC 02, 30 JAN 03, 26 FEB 03, 20 MG CAPSULES DISPENSED ON 02 APR 03
     Route: 065
     Dates: start: 20021218, end: 20030331
  4. ACCUTANE [Suspect]
     Active Substance: ISOTRETINOIN
     Dosage: ALTERNATE 40 MG AND 60 MG DAILY
     Route: 065
     Dates: start: 20030414, end: 20030514
  5. AMNESTEEM [Suspect]
     Active Substance: ISOTRETINOIN
     Indication: ACNE
     Dosage: 20 MG CAPSULES DISPENSED ON 14 MAY 03
     Route: 065
     Dates: start: 20030514, end: 20030612
  6. AMNESTEEM [Suspect]
     Active Substance: ISOTRETINOIN
     Dosage: 40 MG CAPSULES DISPENSED ON 12 JUN 2003
     Route: 065
     Dates: start: 20030612, end: 20030710

REACTIONS (15)
  - Sinusitis [Unknown]
  - Colitis [Recovering/Resolving]
  - Depression [Unknown]
  - Dry skin [Unknown]
  - Aspartate aminotransferase increased [Recovered/Resolved]
  - Blood albumin increased [Recovered/Resolved]
  - Muscle fatigue [Unknown]
  - Fatigue [Unknown]
  - Red blood cell count increased [Recovered/Resolved]
  - Anxiety [Recovering/Resolving]
  - Blood lactate dehydrogenase increased [Recovered/Resolved]
  - Blood triglycerides increased [Recovered/Resolved]
  - Inflammatory bowel disease [Unknown]
  - Lip dry [Unknown]
  - Persistent depressive disorder [Unknown]

NARRATIVE: CASE EVENT DATE: 20021230
